FAERS Safety Report 8912827 (Version 1)
Quarter: 2012Q4

REPORT INFORMATION
  Report Type: 
  Country: ES (occurrence: ES)
  Receive Date: 20121116
  Receipt Date: 20121116
  Transmission Date: 20130627
  Serious: Yes (Hospitalization)
  Sender: FDA-Public Use
  Company Number: ES-009507513-1211ESP006317

PATIENT
  Age: 39 Year
  Sex: Female

DRUGS (6)
  1. ORGALUTRAN [Suspect]
     Indication: INFERTILITY
     Route: 058
     Dates: start: 20110420, end: 20110420
  2. OVITRELLE [Suspect]
     Indication: INFERTILITY
     Route: 058
     Dates: start: 20110420, end: 20110420
  3. UTROGESTAN [Suspect]
     Indication: PROPHYLAXIS
     Route: 048
     Dates: start: 20110421, end: 201109
  4. ESTRADIOL VALERATE [Suspect]
     Route: 048
     Dates: start: 20110705, end: 201109
  5. DIETARY SUPPLEMENT [Suspect]
     Route: 048
     Dates: start: 20120705
  6. DIETARY SUPPLEMENT [Suspect]
     Route: 048
     Dates: start: 20110705, end: 20120213

REACTIONS (2)
  - Cholestasis [Recovered/Resolved]
  - Complication of pregnancy [None]
